FAERS Safety Report 16893726 (Version 1)
Quarter: 2019Q4

REPORT INFORMATION
  Report Type: Spontaneous
  Country: US (occurrence: US)
  Receive Date: 20190813
  Receipt Date: 20190813
  Transmission Date: 20200122
  Serious: No
  Sender: FDA-Public Use
  Company Number: None

PATIENT

DRUGS (3)
  1. KEPPRA [Suspect]
     Active Substance: LEVETIRACETAM
  2. WARFARIN SODIUM. [Suspect]
     Active Substance: WARFARIN SODIUM
  3. AZITHROMYCIN ANHYDROUS. [Suspect]
     Active Substance: AZITHROMYCIN ANHYDROUS

REACTIONS (2)
  - Product dispensing error [None]
  - Duplicate therapy error [None]
